FAERS Safety Report 17064472 (Version 2)
Quarter: 2019Q4

REPORT INFORMATION
  Report Type: Spontaneous
  Country: US (occurrence: US)
  Receive Date: 20191122
  Receipt Date: 20191219
  Transmission Date: 20200122
  Serious: No
  Sender: FDA-Public Use
  Company Number: US-PFIZER INC-2019474517

PATIENT
  Age: 53 Year
  Sex: Female
  Weight: 50.8 kg

DRUGS (4)
  1. LEVOXYL [Suspect]
     Active Substance: LEVOTHYROXINE SODIUM
     Dosage: 100 UG, UNK
  2. PREMARIN [Concomitant]
     Active Substance: ESTROGENS, CONJUGATED
  3. LEVOXYL [Suspect]
     Active Substance: LEVOTHYROXINE SODIUM
     Indication: THYROID DISORDER
     Dosage: 100 MG, UNK
  4. LEVOXYL [Suspect]
     Active Substance: LEVOTHYROXINE SODIUM
     Dosage: 50 UG, UNK

REACTIONS (9)
  - Dry skin [Unknown]
  - Product packaging issue [Unknown]
  - Malaise [Unknown]
  - Fatigue [Unknown]
  - Product prescribing error [Unknown]
  - Alopecia [Unknown]
  - Symptom recurrence [Unknown]
  - Asthenia [Unknown]
  - Product dispensing error [Unknown]
